FAERS Safety Report 10060540 (Version 1)
Quarter: 2014Q2

REPORT INFORMATION
  Report Type: Spontaneous
  Country: US (occurrence: US)
  Receive Date: 20140404
  Receipt Date: 20140404
  Transmission Date: 20141212
  Serious: No
  Sender: FDA-Public Use
  Company Number: US-GILEAD-2014-0098774

PATIENT
  Sex: Female

DRUGS (2)
  1. LETAIRIS [Suspect]
     Indication: PULMONARY ARTERIAL HYPERTENSION
     Route: 065
     Dates: start: 20110811, end: 20140317
  2. SILDENAFIL [Concomitant]

REACTIONS (3)
  - Skin burning sensation [Unknown]
  - Hyperhidrosis [Unknown]
  - Nausea [Unknown]
